FAERS Safety Report 10416036 (Version 3)
Quarter: 2014Q4

REPORT INFORMATION
  Report Type: Spontaneous
  Country: US (occurrence: US)
  Receive Date: 20140828
  Receipt Date: 20141125
  Transmission Date: 20150528
  Serious: No
  Sender: FDA-Public Use
  Company Number: US-PFIZER INC-2014238292

PATIENT
  Age: 61 Year
  Sex: Female

DRUGS (9)
  1. METHOTREXATE [Concomitant]
     Active Substance: METHOTREXATE
     Dosage: 25 MG/M VIAL, UNK
  2. SALSALATE. [Concomitant]
     Active Substance: SALSALATE
     Dosage: 750 MG, UNK
  3. MULTIVITAMINS [Concomitant]
     Active Substance: VITAMINS
  4. XELJANZ [Suspect]
     Active Substance: TOFACITINIB CITRATE
     Dosage: 5 MG, 2X/DAY
     Route: 048
     Dates: start: 201407
  5. XELJANZ [Suspect]
     Active Substance: TOFACITINIB CITRATE
     Dosage: 5 MG, 2X/DAY
     Route: 048
     Dates: start: 20140819, end: 20141010
  6. VITAMIN B12 [Concomitant]
     Active Substance: CYANOCOBALAMIN
     Dosage: 1000 UG, UNK
  7. PAROXETINE HYDROCHLORIDE. [Concomitant]
     Active Substance: PAROXETINE HYDROCHLORIDE
     Dosage: 30 MG, UNK
  8. CALCIUM WITH VITAMIN D [Concomitant]
     Active Substance: CALCIUM\VITAMIN D
     Dosage: UNK
  9. FISH OIL [Concomitant]
     Active Substance: FISH OIL
     Dosage: 1000 MG, UNK

REACTIONS (5)
  - Headache [Recovered/Resolved]
  - Drug ineffective [Not Recovered/Not Resolved]
  - Fatigue [Recovered/Resolved]
  - Sinus congestion [Recovered/Resolved]
  - Blood cholesterol increased [Unknown]

NARRATIVE: CASE EVENT DATE: 201407
